FAERS Safety Report 24936707 (Version 2)
Quarter: 2025Q2

REPORT INFORMATION
  Report Type: Spontaneous
  Country: US (occurrence: US)
  Receive Date: 20250206
  Receipt Date: 20250507
  Transmission Date: 20250717
  Serious: No
  Sender: OTSUKA
  Company Number: US-OTSUKA-2024_033727

PATIENT
  Sex: Female

DRUGS (1)
  1. ABILIFY ASIMTUFII [Suspect]
     Active Substance: ARIPIPRAZOLE
     Indication: Bipolar disorder
     Route: 030

REACTIONS (2)
  - Symptom recurrence [Unknown]
  - Drug effect less than expected [Unknown]
